FAERS Safety Report 8081138-7 (Version None)
Quarter: 2012Q1

REPORT INFORMATION
  Report Type: 
  Country: None (occurrence: None)
  Receive Date: 20120130
  Receipt Date: 20120123
  Transmission Date: 20120608
  Serious: Yes (Hospitalization)
  Sender: FDA-Public Use
  Company Number: US-GLAXOSMITHKLINE-A0915667A

PATIENT
  Age: 66 Year
  Sex: Male
  Weight: 94.3 kg

DRUGS (7)
  1. METOPROLOL TARTRATE [Concomitant]
  2. LIPITOR [Concomitant]
  3. ROSIGLITAZONE MALEATE [Suspect]
     Indication: DIABETES MELLITUS
     Dosage: 4MG PER DAY
     Route: 048
     Dates: start: 20001201, end: 20060501
  4. OMEPRAZOLE [Concomitant]
  5. AMARYL [Concomitant]
  6. GLIPIZIDE [Concomitant]
  7. LOSARTAN POTASSIUM [Concomitant]

REACTIONS (5)
  - CEREBROVASCULAR ACCIDENT [None]
  - CARDIOMYOPATHY [None]
  - MYOCARDIAL INFARCTION [None]
  - CARDIAC FAILURE CONGESTIVE [None]
  - ARTERIOSCLEROSIS CORONARY ARTERY [None]
